FAERS Safety Report 7513192-2 (Version None)
Quarter: 2011Q2

REPORT INFORMATION
  Report Type: 
  Country: None (occurrence: None)
  Receive Date: 20110525
  Receipt Date: 20110525
  Transmission Date: 20111010
  Serious: No
  Sender: FDA-Public Use
  Company Number: None

PATIENT
  Age: 84 Year
  Sex: Female
  Weight: 77.1115 kg

DRUGS (2)
  1. LISINOPRIL [Concomitant]
  2. LEVOTHYROXINE SODIUM [Suspect]
     Indication: HYPOTHYROIDISM
     Dosage: 0.05MG 1 DAILY
     Dates: start: 20100301, end: 20110301

REACTIONS (9)
  - FATIGUE [None]
  - IRRITABILITY [None]
  - PRURITUS [None]
  - MUSCULAR WEAKNESS [None]
  - RASH [None]
  - LIP SWELLING [None]
  - SWELLING FACE [None]
  - DYSPNOEA [None]
  - URTICARIA [None]
